FAERS Safety Report 9969074 (Version 1)
Quarter: 2014Q1

REPORT INFORMATION
  Report Type: Report from Study
  Country: US (occurrence: US)
  Receive Date: 20140306
  Receipt Date: 20140306
  Transmission Date: 20141002
  Serious: No
  Sender: FDA-Public Use
  Company Number: US-ABBVIE-13P-163-1145131-00

PATIENT
  Age: 56 Year
  Sex: Female

DRUGS (10)
  1. HUMIRA [Suspect]
     Indication: RHEUMATOID ARTHRITIS
     Dates: start: 20130531
  2. METHOTREXATE [Concomitant]
     Indication: PRODUCT USED FOR UNKNOWN INDICATION
     Dosage: 6  PILLS WEEKLY
  3. ACETAMINOPHEN [Concomitant]
     Indication: PAIN
  4. TIZANIDINE [Concomitant]
     Indication: MUSCLE RELAXANT THERAPY
  5. CELEXA [Concomitant]
     Indication: DEPRESSION
  6. AMBIEN [Concomitant]
     Indication: INSOMNIA
  7. AMBIEN [Concomitant]
     Indication: PAIN
  8. DICLOFENAC [Concomitant]
     Indication: RHEUMATOID ARTHRITIS
  9. DICLOFENAC [Concomitant]
     Dosage: 1 DAILY
  10. SOMA [Concomitant]
     Indication: PAIN

REACTIONS (2)
  - Injection site vesicles [Recovered/Resolved]
  - Hypertension [Recovered/Resolved]
